FAERS Safety Report 24350360 (Version 1)
Quarter: 2024Q3

REPORT INFORMATION
  Report Type: Report from Study
  Country: US (occurrence: US)
  Receive Date: 20240923
  Receipt Date: 20240923
  Transmission Date: 20241017
  Serious: No
  Sender: ROCHE
  Company Number: US-ROCHE-3508313

PATIENT
  Age: 57 Year
  Sex: Female

DRUGS (25)
  1. HERCEPTIN [Suspect]
     Active Substance: TRASTUZUMAB
     Indication: Breast cancer female
     Route: 041
     Dates: start: 20230824
  2. PERJETA [Suspect]
     Active Substance: PERTUZUMAB
     Indication: Breast cancer female
     Route: 065
  3. PARAPLATIN [Concomitant]
     Active Substance: CARBOPLATIN
  4. DOCETAXEL [Concomitant]
     Active Substance: DOCETAXEL\DOCETAXEL ANHYDROUS
  5. ONDANSETRON [Concomitant]
     Active Substance: ONDANSETRON
  6. MULTIHANCE [Concomitant]
     Active Substance: GADOBENATE DIMEGLUMINE
  7. DECARON [Concomitant]
  8. NORVASC [Concomitant]
     Active Substance: AMLODIPINE BESYLATE
  9. LOVENOX [Concomitant]
     Active Substance: ENOXAPARIN SODIUM
  10. PAXIL [Concomitant]
     Active Substance: PAROXETINE HYDROCHLORIDE
  11. HYDRALAZINE HYDROCHLORIDE [Concomitant]
     Active Substance: HYDRALAZINE HYDROCHLORIDE
  12. ANCEF [Concomitant]
     Active Substance: CEFAZOLIN SODIUM
  13. SUBLIMAZE [Concomitant]
     Active Substance: FENTANYL CITRATE
  14. ROMAZICON [Concomitant]
     Active Substance: FLUMAZENIL
  15. THYROID, PORCINE [Concomitant]
     Active Substance: THYROID, PORCINE
  16. HEPARIN [Concomitant]
     Active Substance: HEPARIN SODIUM
  17. XYLOCAINE [Concomitant]
     Active Substance: LIDOCAINE HYDROCHLORIDE
  18. VERSED [Concomitant]
     Active Substance: MIDAZOLAM HYDROCHLORIDE
  19. NARCAN [Concomitant]
     Active Substance: NALOXONE HYDROCHLORIDE
  20. SODIUM CHLORIDE [Concomitant]
     Active Substance: SODIUM CHLORIDE
  21. MELATONIN [Concomitant]
     Active Substance: MELATONIN
  22. TYLENOL [Concomitant]
     Active Substance: ACETAMINOPHEN
  23. ZOFRAN [Concomitant]
     Active Substance: ONDANSETRON HYDROCHLORIDE
  24. MIRALAX [Concomitant]
     Active Substance: POLYETHYLENE GLYCOL 3350
  25. ULTRAM [Concomitant]
     Active Substance: TRAMADOL HYDROCHLORIDE

REACTIONS (5)
  - Vascular access site pain [Unknown]
  - Contusion [Unknown]
  - Nausea [Unknown]
  - Vomiting [Unknown]
  - Anxiety [Unknown]
